FAERS Safety Report 6608939-3 (Version None)
Quarter: 2010Q1

REPORT INFORMATION
  Report Type: 
  Country: None (occurrence: None)
  Receive Date: 20100301
  Receipt Date: 20100219
  Transmission Date: 20100710
  Serious: No
  Sender: FDA-Public Use
  Company Number: US-B.I. PHARMACEUTICALS,INC./RIDGEFIELD-2010-BP-00019BP

PATIENT
  Sex: Female
  Weight: 55.79 kg

DRUGS (12)
  1. SPIRIVA [Suspect]
     Indication: CHRONIC OBSTRUCTIVE PULMONARY DISEASE
     Dosage: 18 MCG
     Route: 055
     Dates: start: 20091204, end: 20091206
  2. SPIRIVA [Suspect]
     Indication: BRONCHITIS
  3. ADVAIR DISKUS 100/50 [Concomitant]
     Indication: CHRONIC OBSTRUCTIVE PULMONARY DISEASE
     Route: 055
     Dates: start: 20070101
  4. XOPENEX [Concomitant]
     Indication: CHRONIC OBSTRUCTIVE PULMONARY DISEASE
     Route: 055
  5. TOPROL-XL [Concomitant]
     Indication: HEART RATE IRREGULAR
     Dates: start: 20060101
  6. LIPITOR [Concomitant]
     Indication: BLOOD CHOLESTEROL INCREASED
     Dates: start: 20060101
  7. NEXIUM [Concomitant]
     Indication: GASTROOESOPHAGEAL REFLUX DISEASE
     Dates: start: 20060101
  8. CYMBALTA [Concomitant]
     Indication: DEPRESSION
     Dates: start: 20040101
  9. CLONAZEPAM [Concomitant]
     Indication: ANXIETY
     Dates: start: 20020101
  10. VALTREX [Concomitant]
     Indication: RASH
     Dates: start: 20070101
  11. AUGMENTIN [Concomitant]
     Route: 048
     Dates: start: 20091228, end: 20100107
  12. OMNARIS [Concomitant]
     Route: 045
     Dates: start: 20091228, end: 20100107

REACTIONS (3)
  - DYSPHONIA [None]
  - LARYNGEAL OEDEMA [None]
  - ORAL CANDIDIASIS [None]
